FAERS Safety Report 17103294 (Version 2)
Quarter: 2019Q4

REPORT INFORMATION
  Report Type: Spontaneous
  Country: US (occurrence: US)
  Receive Date: 20191203
  Receipt Date: 20191205
  Transmission Date: 20200122
  Serious: No
  Sender: FDA-Public Use
  Company Number: US-GW PHARMA-201911USGW4404

PATIENT

DRUGS (32)
  1. GUANFACINE. [Concomitant]
     Active Substance: GUANFACINE
     Indication: PRODUCT USED FOR UNKNOWN INDICATION
     Dosage: STOP DATE: 19 FEB 2020
     Route: 065
     Dates: start: 20190302
  2. AMITIZA [Concomitant]
     Active Substance: LUBIPROSTONE
     Dosage: STOP DATE: 15 MAR 2020
     Route: 065
     Dates: start: 20190917
  3. VIMPAT [Concomitant]
     Active Substance: LACOSAMIDE
     Indication: PRODUCT USED FOR UNKNOWN INDICATION
     Dosage: STOP DATE: 01 DEC 2019
     Route: 065
     Dates: start: 20190604
  4. EPIDIOLEX [Suspect]
     Active Substance: CANNABIDIOL
     Indication: LENNOX-GASTAUT SYNDROME
     Dosage: 500 MILLIGRAM, BID
     Route: 048
     Dates: start: 20190215
  5. DICYCLOMINE [DICYCLOVERINE] [Concomitant]
     Indication: PRODUCT USED FOR UNKNOWN INDICATION
     Dosage: STOP DATE: 01 DEC 2019
     Route: 065
     Dates: start: 20190307
  6. MONTELUKAST [Concomitant]
     Active Substance: MONTELUKAST SODIUM
     Indication: PRODUCT USED FOR UNKNOWN INDICATION
     Dosage: STOP DATE: 01 JAN 2020
     Route: 065
     Dates: start: 20190705
  7. FLUTICASONE. [Concomitant]
     Active Substance: FLUTICASONE
     Indication: PRODUCT USED FOR UNKNOWN INDICATION
     Dosage: STOP DATE: 16 MAY 2020
     Route: 065
     Dates: start: 20190816
  8. QUETIAPINE. [Concomitant]
     Active Substance: QUETIAPINE
     Indication: PRODUCT USED FOR UNKNOWN INDICATION
     Dosage: UNK, EXTENDED RELEASE (STOP DATE:01 JAN 2020)
     Route: 065
     Dates: start: 20181015
  9. POLYETHYLENE GLYCOL [Concomitant]
     Active Substance: POLYETHYLENE GLYCOLS
     Indication: PRODUCT USED FOR UNKNOWN INDICATION
     Dosage: (STOP DATE: 04DEC2019)
     Route: 065
     Dates: start: 20190115
  10. DICYCLOMINE [DICYCLOVERINE] [Concomitant]
     Dosage: STOP DATE: 04 MAR 2020
     Route: 065
     Dates: start: 20190906
  11. VIMPAT [Concomitant]
     Active Substance: LACOSAMIDE
     Dosage: STOP DATE: 03 MAR 2020
     Route: 065
     Dates: start: 20190905
  12. VIMPAT [Concomitant]
     Active Substance: LACOSAMIDE
     Dosage: STOP DATE: 04 MAR 2020
     Route: 065
     Dates: start: 20190611
  13. LEVOTHYROXINE. [Concomitant]
     Active Substance: LEVOTHYROXINE
     Dosage: STOP DATE: 14 MAR 2020
     Route: 065
     Dates: start: 20190916
  14. MONTELUKAST [Concomitant]
     Active Substance: MONTELUKAST SODIUM
     Dosage: STOP DATE: 21 APR 2020
     Route: 065
     Dates: start: 20190719
  15. ATORVASTATIN [Concomitant]
     Active Substance: ATORVASTATIN
     Indication: PRODUCT USED FOR UNKNOWN INDICATION
     Dosage: STOP DATE: 22 JAN 2020
     Route: 065
     Dates: start: 20190726
  16. LANTUS [Concomitant]
     Active Substance: INSULIN GLARGINE
     Dosage: (STOP DATE: 29 FEB 2020)
     Route: 065
     Dates: start: 20191002
  17. NOVOLOG [Concomitant]
     Active Substance: INSULIN ASPART
     Indication: PRODUCT USED FOR UNKNOWN INDICATION
     Dosage: FLEXPEN (STOP DATE: 13 MAY 2020)
     Route: 065
     Dates: start: 20190205
  18. OMEPRAZOLE. [Concomitant]
     Active Substance: OMEPRAZOLE
     Indication: PRODUCT USED FOR UNKNOWN INDICATION
     Dosage: STOP DATE: 03 MAR 2020
     Route: 065
     Dates: start: 20190304
  19. VIMPAT [Concomitant]
     Active Substance: LACOSAMIDE
     Indication: PRODUCT USED FOR UNKNOWN INDICATION
     Dosage: STOP DATE: 02 DEC 2019
     Route: 065
     Dates: start: 20190311
  20. LEVOTHYROXINE. [Concomitant]
     Active Substance: LEVOTHYROXINE
     Indication: PRODUCT USED FOR UNKNOWN INDICATION
     Dosage: STOP DATE: 18 DEC 2019
     Route: 065
     Dates: start: 20190318
  21. MIDODRINE [Concomitant]
     Active Substance: MIDODRINE
     Indication: PRODUCT USED FOR UNKNOWN INDICATION
     Dosage: STOP DATE: 23 DEC 2019
     Route: 065
     Dates: start: 20190321
  22. LANTUS [Concomitant]
     Active Substance: INSULIN GLARGINE
     Dosage: (STOP DATE: 22 MAR 2020)
     Route: 065
     Dates: start: 20191024
  23. AMITIZA [Concomitant]
     Active Substance: LUBIPROSTONE
     Indication: PRODUCT USED FOR UNKNOWN INDICATION
     Dosage: STOP DATE: 11 DEC 2019
     Route: 065
     Dates: start: 20190307
  24. LEVOTHYROXINE. [Concomitant]
     Active Substance: LEVOTHYROXINE
     Dosage: STOP DATE: 13 MAR 2020
     Route: 065
     Dates: start: 20190915
  25. QUETIAPINE. [Concomitant]
     Active Substance: QUETIAPINE
     Dosage: UNK, EXTENDED RELEASE (STOP DATE: 23 MAR 2020)
     Route: 065
     Dates: start: 20190925
  26. ATORVASTATIN [Concomitant]
     Active Substance: ATORVASTATIN
     Dosage: STOP DATE: 21 APR 2020
     Route: 065
     Dates: start: 20191024
  27. CETIRIZINE [Concomitant]
     Active Substance: CETIRIZINE HYDROCHLORIDE
     Indication: PRODUCT USED FOR UNKNOWN INDICATION
     Dosage: STOP DATE: 12 FEB 2020
     Route: 065
     Dates: start: 20190816
  28. LANTUS [Concomitant]
     Active Substance: INSULIN GLARGINE
     Indication: PRODUCT USED FOR UNKNOWN INDICATION
     Dosage: (STOP DATE: 06 JAN 2020)
     Route: 065
     Dates: start: 20181218
  29. LANTUS [Concomitant]
     Active Substance: INSULIN GLARGINE
     Dosage: (STOP DATE: 03 MAR 2020)
     Route: 065
     Dates: start: 20191005
  30. GUANFACINE. [Concomitant]
     Active Substance: GUANFACINE
     Dosage: STOP DATE: 10 MAY 2020
     Route: 065
     Dates: start: 20191112
  31. VIMPAT [Concomitant]
     Active Substance: LACOSAMIDE
     Dosage: STOP DATE: 08 MAR 2020
     Route: 065
     Dates: start: 20190910
  32. CETIRIZINE [Concomitant]
     Active Substance: CETIRIZINE HYDROCHLORIDE
     Dosage: STOP DATE: 10 MAY 2020
     Route: 065
     Dates: start: 20191114

REACTIONS (1)
  - Balance disorder [Recovered/Resolved]

NARRATIVE: CASE EVENT DATE: 2019
